FAERS Safety Report 5403508-5 (Version None)
Quarter: 2007Q3

REPORT INFORMATION
  Report Type: 
  Country: None (occurrence: None)
  Receive Date: 20070730
  Receipt Date: 20070723
  Transmission Date: 20080115
  Serious: Yes (Hospitalization)
  Sender: FDA-Public Use
  Company Number: 2007SP014618

PATIENT
  Sex: Female

DRUGS (1)
  1. INTRON A [Suspect]
     Indication: THROMBOCYTOPENIA
     Dosage: 2 MIU; BIW;
     Dates: start: 20040101, end: 20070411

REACTIONS (3)
  - CAESAREAN SECTION [None]
  - DRUG EXPOSURE DURING PREGNANCY [None]
  - PREGNANCY [None]
